FAERS Safety Report 4446789-7 (Version None)
Quarter: 2004Q3

REPORT INFORMATION
  Report Type: 
  Country: None (occurrence: None)
  Receive Date: 20040910
  Receipt Date: 20040830
  Transmission Date: 20050211
  Serious: Yes (Hospitalization, Disabling)
  Sender: FDA-Public Use
  Company Number: TAP2004Q01069

PATIENT
  Age: 43 Year
  Sex: Female

DRUGS (5)
  1. LUPRON DEPOT-3 [Suspect]
     Indication: ENDOMETRIOSIS
     Dosage: 11.25 MG, 1 IN 3 M, INTRA-MUSCULAR
     Route: 030
     Dates: start: 20040527
  2. LISINOPRIL [Concomitant]
  3. HYDROCHLOROTHIAZIDE [Concomitant]
  4. TOPROL (METOPROLOL SUCCINATE) [Concomitant]
  5. NORETHINDRONE (NORETHISTERONE) [Concomitant]

REACTIONS (3)
  - ARTHRALGIA [None]
  - BLOOD CREATINE PHOSPHOKINASE INCREASED [None]
  - FATIGUE [None]
